FAERS Safety Report 21254935 (Version 1)
Quarter: 2022Q3

REPORT INFORMATION
  Report Type: Spontaneous
  Country: DE (occurrence: DE)
  Receive Date: 20220825
  Receipt Date: 20220825
  Transmission Date: 20221027
  Serious: Yes (Death, Hospitalization, Other)
  Sender: FDA-Public Use
  Company Number: DE-TEVA-2022-DE-2066896

PATIENT
  Age: 56 Year
  Sex: Male

DRUGS (18)
  1. VINCRISTINE [Suspect]
     Active Substance: VINCRISTINE
     Indication: Diffuse large B-cell lymphoma
     Dosage: R-CHOP REGIMEN; RECEIVED 6 CYCLES
     Route: 065
  2. DEXAMETHASONE [Suspect]
     Active Substance: DEXAMETHASONE
     Indication: Angioimmunoblastic T-cell lymphoma
     Dosage: R-DHAP REGIMEN
     Route: 065
  3. CISPLATIN [Suspect]
     Active Substance: CISPLATIN
     Indication: Angioimmunoblastic T-cell lymphoma
     Dosage: R-DHAP REGIMEN
     Route: 065
  4. GEMCITABINE [Suspect]
     Active Substance: GEMCITABINE
     Indication: Angioimmunoblastic T-cell lymphoma
     Dosage: R-GEMOX REGIMEN
     Route: 065
  5. CARBOPLATIN [Suspect]
     Active Substance: CARBOPLATIN
     Indication: Angioimmunoblastic T-cell lymphoma
     Dosage: R-ICE REGIMEN
     Route: 065
  6. ETOPOSIDE [Suspect]
     Active Substance: ETOPOSIDE
     Indication: Angioimmunoblastic T-cell lymphoma
     Dosage: R-ICE REGIMEN
     Route: 065
  7. RITUXIMAB [Suspect]
     Active Substance: RITUXIMAB
     Indication: Diffuse large B-cell lymphoma
     Dosage: R-CHOP REGIMEN; RECEIVED 6 CYCLES
     Route: 065
  8. RITUXIMAB [Suspect]
     Active Substance: RITUXIMAB
     Indication: Angioimmunoblastic T-cell lymphoma
     Dosage: TWO CYCLES
     Route: 065
  9. RITUXIMAB [Suspect]
     Active Substance: RITUXIMAB
     Dosage: R-DHAP REGIMEN
     Route: 065
  10. RITUXIMAB [Suspect]
     Active Substance: RITUXIMAB
     Dosage: R-GEMOX REGIMEN
     Route: 065
  11. RITUXIMAB [Suspect]
     Active Substance: RITUXIMAB
     Dosage: R-ICE REGIMEN
     Route: 065
  12. CYCLOPHOSPHAMIDE [Suspect]
     Active Substance: CYCLOPHOSPHAMIDE
     Indication: Diffuse large B-cell lymphoma
     Dosage: R-CHOP REGIMEN; RECEIVED 6 CYCLES
     Route: 065
  13. DOXORUBICIN [Suspect]
     Active Substance: DOXORUBICIN
     Indication: Diffuse large B-cell lymphoma
     Dosage: R-CHOP REGIMEN; RECEIVED 6 CYCLES
     Route: 065
  14. PREDNISOLONE [Suspect]
     Active Substance: PREDNISOLONE
     Indication: Diffuse large B-cell lymphoma
     Dosage: R-CHOP REGIMEN; RECEIVED 6 CYCLES
     Route: 065
  15. CYTARABINE [Suspect]
     Active Substance: CYTARABINE
     Indication: Angioimmunoblastic T-cell lymphoma
     Dosage: R-DHAP REGIMEN
     Route: 065
  16. OXALIPLATIN [Suspect]
     Active Substance: OXALIPLATIN
     Indication: Angioimmunoblastic T-cell lymphoma
     Dosage: R-GEMOX REGIMEN
     Route: 065
  17. IFOSFAMIDE [Suspect]
     Active Substance: IFOSFAMIDE
     Indication: Angioimmunoblastic T-cell lymphoma
     Dosage: R-ICE REGIMEN
     Route: 065
  18. PROBENECID [Concomitant]
     Active Substance: PROBENECID
     Indication: Adenovirus infection
     Route: 065

REACTIONS (12)
  - Cardiac arrest [Fatal]
  - Adenovirus infection [Fatal]
  - Adenovirus reactivation [Fatal]
  - Bleeding time prolonged [Unknown]
  - Hepatic encephalopathy [Unknown]
  - Hypoglycaemia [Unknown]
  - Acute hepatic failure [Unknown]
  - Febrile neutropenia [Unknown]
  - Sepsis [Unknown]
  - Respiratory failure [Unknown]
  - Adenoviral hepatitis [Unknown]
  - Pneumonia adenoviral [Unknown]
